FAERS Safety Report 5756462-0 (Version None)
Quarter: 2008Q2

REPORT INFORMATION
  Report Type: 
  Country: None (occurrence: None)
  Receive Date: 20080528
  Receipt Date: 20080513
  Transmission Date: 20081010
  Serious: Yes (Other)
  Sender: FDA-Public Use
  Company Number: 2008BI012499

PATIENT

DRUGS (2)
  1. ZEVALIN [Suspect]
     Indication: DRUG USE FOR UNKNOWN INDICATION
     Dosage: 1X;IV
     Route: 042
     Dates: start: 20080505, end: 20080505
  2. RITUXIMAB [Concomitant]

REACTIONS (1)
  - CEREBROVASCULAR ACCIDENT [None]
